FAERS Safety Report 7584343-9 (Version None)
Quarter: 2011Q2

REPORT INFORMATION
  Report Type: 
  Country: None (occurrence: None)
  Receive Date: 20110531
  Receipt Date: 20110329
  Transmission Date: 20111010
  Serious: Yes (Hospitalization)
  Sender: FDA-Public Use
  Company Number: WAES 1103USA03892

PATIENT
  Sex: Male

DRUGS (3)
  1. LIPITOR [Concomitant]
  2. JANUMET [Suspect]
     Indication: DIABETES MELLITUS
     Dosage: PO
     Route: 048
  3. TRILIPIX [Concomitant]

REACTIONS (1)
  - PANCREATITIS [None]
